FAERS Safety Report 21544405 (Version 1)
Quarter: 2022Q4

REPORT INFORMATION
  Report Type: Report from Study
  Country: US (occurrence: US)
  Receive Date: 20221102
  Receipt Date: 20221102
  Transmission Date: 20230113
  Serious: No
  Sender: FDA-Public Use
  Company Number: US-ABBVIE-4150853

PATIENT
  Sex: Female

DRUGS (2)
  1. HUMIRA [Suspect]
     Active Substance: ADALIMUMAB
     Indication: Psoriatic arthropathy
     Route: 058
  2. Moderna Covid-19 vaccination [Concomitant]
     Indication: COVID-19 immunisation
     Route: 030

REACTIONS (4)
  - Anxiety [Unknown]
  - Pain [Unknown]
  - Asthma [Unknown]
  - Vitamin D deficiency [Unknown]
